FAERS Safety Report 10397681 (Version 1)
Quarter: 2014Q3

REPORT INFORMATION
  Report Type: Report from Study
  Country: US (occurrence: US)
  Receive Date: 20140821
  Receipt Date: 20140821
  Transmission Date: 20150326
  Serious: Yes (Hospitalization)
  Sender: FDA-Public Use
  Company Number: US-MERCK-1408USA011056

PATIENT
  Age: 58 Year
  Sex: Female
  Weight: 83.8 kg

DRUGS (6)
  1. CYTARABINE. [Suspect]
     Active Substance: CYTARABINE
     Indication: ACUTE MYELOID LEUKAEMIA
     Dosage: 1500 MG/M2/DAY, CONTINOUS, ON DAYS 4-7,INDUCTION AND RE-INDUCTION (CYCLE=28 DAYS), CYCLE 1
     Route: 042
     Dates: start: 20140615, end: 20140618
  2. IDARUBICIN [Suspect]
     Active Substance: IDARUBICIN
     Dosage: 12 MG/M2/DAY, OVER 15 MINUTES, ON DAYS 4-6, INDUCTION AND RE-INDUCTION (CYCLE=28 DAYS), CYCLE 2
     Route: 042
     Dates: start: 20140717, end: 20140725
  3. IDARUBICIN [Suspect]
     Active Substance: IDARUBICIN
     Indication: ACUTE MYELOID LEUKAEMIA
     Dosage: 12 MG/M2/DAY, OVER 15 MINUTES, ON DAYS 4-6, INDUCTION AND RE-INDUCTION (CYCLE=28 DAYS), CYCLE 1
     Route: 042
     Dates: start: 20140615, end: 20140617
  4. VORINOSTAT [Suspect]
     Active Substance: VORINOSTAT
     Indication: ACUTE MYELOID LEUKAEMIA
     Dosage: 500 MG, TID, ON DAYS 1-3, INDUCTION AND RE-INDUCTION (CYCLE=28 DAYS), CYCLE 1
     Route: 048
     Dates: start: 20140612, end: 20140614
  5. CYTARABINE. [Suspect]
     Active Substance: CYTARABINE
     Dosage: 1500 MG/M2/DAY, CONTINOUS, ON DAYS 4-7,INDUCTION AND RE-INDUCTION (CYCLE=28 DAYS), CYCLE 1
     Route: 042
     Dates: start: 20140717, end: 20140726
  6. VORINOSTAT [Suspect]
     Active Substance: VORINOSTAT
     Dosage: 500 MG, TID, ON DAYS 1-3, INDUCTION AND RE-INDUCTION (CYCLE=28 DAYS), CYCLE 2
     Route: 048
     Dates: start: 20140714, end: 20140721

REACTIONS (1)
  - Dyspnoea [Not Recovered/Not Resolved]

NARRATIVE: CASE EVENT DATE: 20140805
